FAERS Safety Report 24406614 (Version 1)
Quarter: 2024Q4

REPORT INFORMATION
  Report Type: Spontaneous
  Country: US (occurrence: None)
  Receive Date: 20241006
  Receipt Date: 20241006
  Transmission Date: 20250115
  Serious: Yes (Other)
  Sender: Public
  Company Number: None

PATIENT
  Age: 67 Year
  Sex: Female
  Weight: 84.15 kg

DRUGS (3)
  1. CREON [Suspect]
     Active Substance: PANCRELIPASE AMYLASE\PANCRELIPASE LIPASE\PANCRELIPASE PROTEASE
     Indication: Diarrhoea
     Dosage: OTHER QUANTITY : 100 CAPSULE(S);?FREQUENCY : 3 TIMES A DAY;?
     Route: 048
     Dates: start: 20240922, end: 20240928
  2. Metropolis 50 [Concomitant]
  3. Daily multi vitamin [Concomitant]

REACTIONS (7)
  - Pruritus [None]
  - Rash erythematous [None]
  - Joint swelling [None]
  - Peripheral swelling [None]
  - Joint stiffness [None]
  - Skin fissures [None]
  - Myalgia [None]

NARRATIVE: CASE EVENT DATE: 20240927
